FAERS Safety Report 8479862-7 (Version None)
Quarter: 2012Q2

REPORT INFORMATION
  Report Type: 
  Country: None (occurrence: None)
  Receive Date: 20120629
  Receipt Date: 20120620
  Transmission Date: 20120825
  Serious: Yes (Hospitalization)
  Sender: FDA-Public Use
  Company Number: NL-MEDIMMUNE-MEDI-0012142

PATIENT
  Age: 6 Month
  Sex: Male
  Weight: 7.2 kg

DRUGS (3)
  1. SYNAGIS [Suspect]
     Indication: ANTIVIRAL PROPHYLAXIS
     Route: 030
     Dates: start: 20100908, end: 20100908
  2. SYNAGIS [Suspect]
     Route: 030
     Dates: start: 20101201, end: 20101201
  3. SYNAGIS [Suspect]
     Route: 030
     Dates: start: 20101229, end: 20101229

REACTIONS (2)
  - DYSPNOEA [None]
  - BRONCHIAL SECRETION RETENTION [None]
